FAERS Safety Report 4678646-5 (Version None)
Quarter: 2005Q2

REPORT INFORMATION
  Report Type: 
  Country: None (occurrence: None)
  Receive Date: 20050527
  Receipt Date: 20050516
  Transmission Date: 20051028
  Serious: Yes (Hospitalization)
  Sender: FDA-Public Use
  Company Number: 163-20785-05050263

PATIENT
  Age: 74 Year
  Sex: Female

DRUGS (5)
  1. THALOMID [Suspect]
     Indication: MULTIPLE MYELOMA
     Dosage: 100 MG, DAILY, ORAL
     Route: 048
     Dates: start: 20031202, end: 20050323
  2. THALOMID [Suspect]
     Indication: MULTIPLE MYELOMA
     Dosage: 100 MG, DAILY, ORAL
     Route: 048
     Dates: start: 20050516
  3. PREDNISONE [Suspect]
     Indication: TEMPORAL ARTERITIS
     Dosage: 5 MG DAILY, PER ORAL
     Route: 048
     Dates: end: 20050301
  4. DECADRON [Suspect]
     Indication: MULTIPLE MYELOMA
     Dates: start: 20021201, end: 20040301
  5. DECADRON [Suspect]
     Indication: MULTIPLE MYELOMA
     Dates: start: 20040801

REACTIONS (1)
  - DIVERTICULITIS [None]
